FAERS Safety Report 16445761 (Version 1)
Quarter: 2019Q2

REPORT INFORMATION
  Report Type: Spontaneous
  Country: DE (occurrence: DE)
  Receive Date: 20190618
  Receipt Date: 20190618
  Transmission Date: 20190711
  Serious: Yes (Other)
  Sender: FDA-Public Use
  Company Number: DE-MYLANLABS-2019M1055959

PATIENT
  Age: 73 Year
  Sex: Female
  Weight: 75 kg

DRUGS (2)
  1. AZATHIOPRINE. [Suspect]
     Active Substance: AZATHIOPRINE
     Indication: CROHN^S DISEASE
     Dosage: 150 MILLIGRAM, QD (100-0-50 MG)
     Route: 048
     Dates: start: 20181007, end: 20181107
  2. PREDNISOLON                        /00016201/ [Concomitant]
     Active Substance: PREDNISOLONE
     Dosage: DAILY DOSE: 5 MG MILLGRAM(S) EVERY DAYS
     Route: 048

REACTIONS (7)
  - Abdominal pain upper [Recovering/Resolving]
  - Sudden hearing loss [Recovering/Resolving]
  - Ototoxicity [Recovering/Resolving]
  - Nausea [Recovering/Resolving]
  - Hypoacusis [Recovering/Resolving]
  - Vomiting [Recovering/Resolving]
  - Tinnitus [Recovering/Resolving]

NARRATIVE: CASE EVENT DATE: 20181029
